FAERS Safety Report 17544900 (Version 1)
Quarter: 2020Q1

REPORT INFORMATION
  Report Type: Spontaneous
  Country: US (occurrence: US)
  Receive Date: 20200306
  Receipt Date: 20200306
  Transmission Date: 20200409
  Serious: Yes (Hospitalization)
  Sender: FDA-Public Use
  Company Number: None

PATIENT
  Age: 85 Year
  Sex: Female

DRUGS (15)
  1. VYNDAMAX [Suspect]
     Active Substance: TAFAMIDIS
     Indication: AMYLOIDOSIS
     Dosage: ?          OTHER DOSE:1 CAP;?
     Route: 048
     Dates: start: 20200111
  2. FUROSEMIDE. [Concomitant]
     Active Substance: FUROSEMIDE
  3. AZELASTINE. [Concomitant]
     Active Substance: AZELASTINE HYDROCHLORIDE
  4. AMOXICILLIN. [Concomitant]
     Active Substance: AMOXICILLIN
  5. CLOPIDOGREL [Concomitant]
     Active Substance: CLOPIDOGREL BISULFATE
  6. CEFDINIR. [Concomitant]
     Active Substance: CEFDINIR
  7. FLOVENT HFA AER [Concomitant]
  8. AMITRIPTYLIN [Concomitant]
     Active Substance: AMITRIPTYLINE
  9. LOSARTAN POT [Concomitant]
     Active Substance: LOSARTAN POTASSIUM
  10. MELOXICAM. [Concomitant]
     Active Substance: MELOXICAM
  11. METRONIDAZOL [Concomitant]
     Active Substance: METRONIDAZOLE
  12. SPIRIVA [Concomitant]
     Active Substance: TIOTROPIUM BROMIDE MONOHYDRATE
  13. ASPIRIN. [Concomitant]
     Active Substance: ASPIRIN
  14. LABETALOL [Concomitant]
     Active Substance: LABETALOL\LABETALOL HYDROCHLORIDE
  15. OMEPRAZOLE. [Concomitant]
     Active Substance: OMEPRAZOLE

REACTIONS (2)
  - Therapy cessation [None]
  - Aortic valve replacement [None]

NARRATIVE: CASE EVENT DATE: 20200205
